FAERS Safety Report 6991315 (Version 40)
Quarter: 2015Q1

REPORT INFORMATION
  Report Type: Report from Study
  Country: CA (occurrence: CA)
  Receive Date: 20090511
  Receipt Date: 20150324
  Transmission Date: 20150721
  Serious: Yes (Death, Hospitalization, Other)
  Sender: FDA-Public Use
  Company Number: PHHY2009CA17403

PATIENT
  Age: 60 Year
  Sex: Female

DRUGS (4)
  1. SANDOSTATIN LAR DEPOT [Suspect]
     Active Substance: OCTREOTIDE ACETATE
     Dosage: UNK
     Route: 030
     Dates: start: 20091103
  2. SANDOSTATIN LAR DEPOT [Suspect]
     Active Substance: OCTREOTIDE ACETATE
     Dosage: 20 MG, EVERY FOUR WEEKS
     Route: 030
     Dates: end: 20150217
  3. SANDOSTATIN LAR DEPOT [Suspect]
     Active Substance: OCTREOTIDE ACETATE
     Dosage: 20 MG, QMO
     Route: 030
     Dates: start: 20110509
  4. SANDOSTATIN LAR DEPOT [Suspect]
     Active Substance: OCTREOTIDE ACETATE
     Indication: SHORT-BOWEL SYNDROME
     Dosage: 20 MG, EVERY 4 WEEKS
     Route: 030
     Dates: start: 20081215

REACTIONS (26)
  - Spinal cord infection [Unknown]
  - Pneumonia [Unknown]
  - Blood pressure increased [Unknown]
  - Rib fracture [Unknown]
  - Gastrointestinal haemorrhage [Unknown]
  - Cellulitis [Unknown]
  - Sepsis [Unknown]
  - Infection [Unknown]
  - Vomiting [Unknown]
  - Gait disturbance [Unknown]
  - Product use issue [Unknown]
  - Intestinal obstruction [Unknown]
  - Abscess intestinal [Unknown]
  - Osteomyelitis [Unknown]
  - Kidney infection [Unknown]
  - Pulmonary embolism [Unknown]
  - Renal failure [Unknown]
  - Jaundice [Unknown]
  - Stress [Unknown]
  - Platelet count decreased [Unknown]
  - Pulmonary oedema [Unknown]
  - Death [Fatal]
  - Spinal fracture [Unknown]
  - Postoperative wound infection [Unknown]
  - Diarrhoea [Not Recovered/Not Resolved]
  - Heart rate increased [Unknown]

NARRATIVE: CASE EVENT DATE: 201308
